FAERS Safety Report 14952753 (Version 1)
Quarter: 2018Q2

REPORT INFORMATION
  Report Type: Spontaneous
  Country: US (occurrence: US)
  Receive Date: 20180530
  Receipt Date: 20180530
  Transmission Date: 20180711
  Serious: No
  Sender: FDA-Public Use
  Company Number: US-MYLANLABS-2018M1030530

PATIENT
  Sex: Female

DRUGS (2)
  1. TIZANIDINE TABLETS, USP [Suspect]
     Active Substance: TIZANIDINE
     Dosage: HALF PILL ONCE OR TWICE A DAY AND A WHOLE ONE AT BEDTIME
     Route: 048
  2. TIZANIDINE TABLETS, USP [Suspect]
     Active Substance: TIZANIDINE
     Indication: PRODUCT USED FOR UNKNOWN INDICATION
     Dosage: 4 MG, TID
     Route: 048

REACTIONS (2)
  - Somnolence [Unknown]
  - Off label use [Unknown]
